FAERS Safety Report 24799910 (Version 2)
Quarter: 2025Q1

REPORT INFORMATION
  Report Type: Spontaneous
  Country: US (occurrence: US)
  Receive Date: 20250102
  Receipt Date: 20250313
  Transmission Date: 20250409
  Serious: Yes (Other)
  Sender: PFIZER
  Company Number: US-PFIZER INC-202400333558

PATIENT
  Age: 75 Year
  Sex: Female

DRUGS (2)
  1. XELJANZ [Suspect]
     Active Substance: TOFACITINIB CITRATE
     Indication: Rheumatoid arthritis
     Dosage: 5 MG, 2X/DAY
     Route: 048
  2. XELJANZ [Suspect]
     Active Substance: TOFACITINIB CITRATE
     Dosage: 5MG PO (PER ORAL) BID (TWICE A DAY)
     Route: 048
     Dates: start: 20190202

REACTIONS (5)
  - Arthralgia [Recovering/Resolving]
  - Chronic kidney disease [Recovering/Resolving]
  - Liver function test increased [Unknown]
  - Blood triglycerides increased [Not Recovered/Not Resolved]
  - Lipids increased [Unknown]
